FAERS Safety Report 9116890 (Version 2)
Quarter: 2013Q1

REPORT INFORMATION
  Report Type: Spontaneous
  Country: US (occurrence: US)
  Receive Date: 20130225
  Receipt Date: 20130321
  Transmission Date: 20140127
  Serious: Yes (Other)
  Sender: FDA-Public Use
  Company Number: PHEH2013US004460

PATIENT
  Age: 13 Year
  Sex: Male
  Weight: 52.61 kg

DRUGS (1)
  1. FOCALIN XR [Suspect]
     Indication: ATTENTION DEFICIT/HYPERACTIVITY DISORDER
     Dosage: 25 MG, QD
     Route: 048
     Dates: start: 20110907, end: 20130214

REACTIONS (4)
  - Raynaud^s phenomenon [Not Recovered/Not Resolved]
  - Feeling cold [Not Recovered/Not Resolved]
  - Pallor [Not Recovered/Not Resolved]
  - Erythema [Not Recovered/Not Resolved]
